FAERS Safety Report 7167329-8 (Version None)
Quarter: 2010Q4

REPORT INFORMATION
  Report Type: 
  Country: None (occurrence: None)
  Receive Date: 20101216
  Receipt Date: 20101207
  Transmission Date: 20110411
  Serious: Yes (Hospitalization)
  Sender: FDA-Public Use
  Company Number: PHHO2010US18545

PATIENT
  Sex: Female
  Weight: 13.4 kg

DRUGS (4)
  1. AFINITOR [Suspect]
     Indication: EPILEPSY
     Dosage: 2.5 MG, QD
     Route: 048
     Dates: start: 20101125, end: 20101129
  2. AFINITOR [Suspect]
     Dosage: 2.5 MG, BID
     Route: 048
     Dates: start: 20101201, end: 20101201
  3. LORAZEPAM [Suspect]
  4. IMMUNE GLOBULIN (HUMAN) [Concomitant]
     Indication: BLOOD IMMUNOGLOBULIN G DECREASED
     Dosage: MONTHLY
     Dates: start: 20101119

REACTIONS (4)
  - CONVULSION [None]
  - OTITIS MEDIA [None]
  - PYREXIA [None]
  - RESPIRATORY DISORDER [None]
